FAERS Safety Report 7948319-1 (Version None)
Quarter: 2011Q4

REPORT INFORMATION
  Report Type: 
  Country: None (occurrence: None)
  Receive Date: 20111130
  Receipt Date: 20111124
  Transmission Date: 20120403
  Serious: Yes (Hospitalization)
  Sender: FDA-Public Use
  Company Number: DE-AMGEN-DEUSP2011062262

PATIENT
  Age: 43 Year
  Sex: Female
  Weight: 64 kg

DRUGS (5)
  1. NEULASTA [Suspect]
     Indication: PROPHYLAXIS
     Dosage: 384 MG, UNK
     Route: 058
     Dates: start: 20111116, end: 20111116
  2. EPIRUBICIN [Concomitant]
     Indication: BREAST CANCER
  3. CYCLOPHOSPHAMIDE [Concomitant]
     Indication: BREAST CANCER
  4. DOCETAXEL [Suspect]
     Indication: BREAST CANCER
     Dosage: 173 MG, UNK
     Route: 042
     Dates: start: 20111115, end: 20111115
  5. FORTECORTIN                        /00016001/ [Concomitant]
     Indication: PROPHYLAXIS
     Dosage: 8 MG, UNK
     Route: 048
     Dates: start: 20111114, end: 20111116

REACTIONS (1)
  - PAIN [None]
